FAERS Safety Report 7464078-3 (Version None)
Quarter: 2011Q2

REPORT INFORMATION
  Report Type: 
  Country: None (occurrence: None)
  Receive Date: 20110506
  Receipt Date: 20110502
  Transmission Date: 20111010
  Serious: Yes (Life-Threatening, Other)
  Sender: FDA-Public Use
  Company Number: DE-ASTRAZENECA-2011SE10308

PATIENT
  Age: 25921 Day
  Sex: Female
  Weight: 62 kg

DRUGS (3)
  1. NAROPIN [Suspect]
     Indication: PERIOPERATIVE ANALGESIA
     Route: 053
     Dates: start: 20110222
  2. CODIOVAN [Concomitant]
  3. BISOPROLOL [Concomitant]

REACTIONS (3)
  - TACHYCARDIA [None]
  - CONVULSION [None]
  - ELECTROCARDIOGRAM QRS COMPLEX PROLONGED [None]
